FAERS Safety Report 18416542 (Version 1)
Quarter: 2020Q4

REPORT INFORMATION
  Report Type: Spontaneous
  Country: US (occurrence: US)
  Receive Date: 20201022
  Receipt Date: 20201022
  Transmission Date: 20210114
  Serious: Yes (Other)
  Sender: FDA-Public Use
  Company Number: US-ASTRAZENECA-2020SF35013

PATIENT
  Age: 24919 Day
  Sex: Female
  Weight: 61.2 kg

DRUGS (10)
  1. MELATONIN CAP [Concomitant]
     Indication: NUTRITIONAL SUPPLEMENTATION
     Route: 048
  2. MILK THISTLE [Concomitant]
     Active Substance: DIETARY SUPPLEMENT\HERBALS\MILK THISTLE
     Route: 048
  3. COENZYME Q10 [Concomitant]
     Active Substance: DIETARY SUPPLEMENT\UBIDECARENONE
     Indication: MINERAL SUPPLEMENTATION
     Route: 048
  4. CALCIUM AND VITAMIN D [Concomitant]
     Active Substance: CALCIUM\VITAMIN D
     Indication: SUPPLEMENTATION THERAPY
     Dosage: CALCIUM 600 IU AND VITAMIN D 1000 IU , DAILY
     Route: 048
  5. IMFINZI [Suspect]
     Active Substance: DURVALUMAB
     Indication: NON-SMALL CELL LUNG CANCER STAGE IIIA
     Route: 042
     Dates: start: 20200304
  6. REISHI MUCHROOM [Concomitant]
     Indication: NUTRITIONAL SUPPLEMENTATION
     Route: 048
  7. APIXIBAN [Concomitant]
     Active Substance: APIXABAN
     Indication: PULMONARY EMBOLISM
     Route: 048
     Dates: start: 20200110
  8. CANNIBUS TINCTURE [Concomitant]
     Route: 048
  9. CORDYCEPS MUSHROOM [Concomitant]
     Indication: NUTRITIONAL SUPPLEMENTATION
     Route: 048
  10. VITAMIN B COMPLEX [Concomitant]
     Active Substance: CYANOCOBALAMIN\DEXPANTHENOL\NIACINAMIDE\PYRIDOXINE HYDROCHLORIDE\RIBOFLAVIN 5^-PHOSPHATE SODIUM\THIAMINE HYDROCHLORIDE\VITAMIN B COMPLEX
     Indication: VITAMIN SUPPLEMENTATION
     Route: 048

REACTIONS (1)
  - Infusion site extravasation [Unknown]

NARRATIVE: CASE EVENT DATE: 20201014
